FAERS Safety Report 21658505 (Version 2)
Quarter: 2022Q4

REPORT INFORMATION
  Report Type: Spontaneous
  Country: US (occurrence: US)
  Receive Date: 20221129
  Receipt Date: 20221214
  Transmission Date: 20230113
  Serious: Yes (Life-Threatening, Hospitalization, Other)
  Sender: FDA-Public Use
  Company Number: US-JUBILANT CADISTA PHARMACEUTICALS-2022JUB00442

PATIENT
  Age: 57 Year
  Sex: Male

DRUGS (3)
  1. AMLODIPINE [Suspect]
     Active Substance: AMLODIPINE BESYLATE
     Indication: Suicide attempt
     Dosage: OVERDOSE; 20 {DF} 1 TOTAL (200 MG CUMMULATIVE DOSE)
     Route: 048
  2. BENAZEPRIL [Suspect]
     Active Substance: BENAZEPRIL HYDROCHLORIDE
     Indication: Suicide attempt
     Dosage: OVERDOSE; 20 {DF} 1 TOTAL (400 MG CUMMULATIVE DOSE)
     Route: 048
  3. GABAPENTIN [Concomitant]
     Active Substance: GABAPENTIN
     Indication: Suicide attempt
     Dosage: 10 {DF} 1 TOTAL

REACTIONS (13)
  - Intentional overdose [Recovering/Resolving]
  - Oropharyngeal oedema [Unknown]
  - Vasoplegia syndrome [Recovering/Resolving]
  - Tongue oedema [Unknown]
  - Lactic acidosis [Recovering/Resolving]
  - Cardiac arrest [Recovering/Resolving]
  - Shock [Recovering/Resolving]
  - Renal impairment [Recovering/Resolving]
  - Toxicity to various agents [Recovering/Resolving]
  - Haemodynamic instability [Recovering/Resolving]
  - Hypervolaemia [Recovering/Resolving]
  - Distributive shock [Recovering/Resolving]
  - Respiratory acidosis [Recovering/Resolving]
